FAERS Safety Report 15088790 (Version 2)
Quarter: 2018Q4

REPORT INFORMATION
  Report Type: Spontaneous
  Country: US (occurrence: US)
  Receive Date: 20180629
  Receipt Date: 20181207
  Transmission Date: 20190204
  Serious: Yes (Other)
  Sender: FDA-Public Use
  Company Number: US-PFIZER INC-2018263058

PATIENT
  Age: 59 Year
  Sex: Male

DRUGS (1)
  1. METHOTREXATE SODIUM. [Suspect]
     Active Substance: METHOTREXATE SODIUM
     Dosage: UNK, (LOW DOSES FOR 5 WEEKS)

REACTIONS (5)
  - Pneumonia [Unknown]
  - Inflammatory pain [Unknown]
  - Condition aggravated [Unknown]
  - Psoriasis [Unknown]
  - Asthma [Unknown]

NARRATIVE: CASE EVENT DATE: 201809
